FAERS Safety Report 15452880 (Version 1)
Quarter: 2018Q4

REPORT INFORMATION
  Report Type: Spontaneous
  Country: ES (occurrence: ES)
  Receive Date: 20181001
  Receipt Date: 20181001
  Transmission Date: 20190204
  Serious: Yes (Death, Hospitalization, Other)
  Sender: FDA-Public Use
  Company Number: ES-TEVA-2018-ES-959391

PATIENT
  Age: 80 Year
  Sex: Male

DRUGS (11)
  1. SERTRALINA (2537A) [Interacting]
     Active Substance: SERTRALINE HYDROCHLORIDE
     Route: 048
     Dates: start: 20180718, end: 20180718
  2. QUETIAPINA (1136A) [Suspect]
     Active Substance: QUETIAPINE
     Route: 048
     Dates: start: 20180718, end: 20180718
  3. MIRTAZAPINE. [Suspect]
     Active Substance: MIRTAZAPINE
     Dosage: 15 MILLIGRAM DAILY;
     Route: 048
     Dates: start: 20180718, end: 20180718
  4. ORFIDAL [Interacting]
     Active Substance: LORAZEPAM
     Dosage: 1 MILLIGRAM DAILY;
     Route: 048
     Dates: start: 20180718, end: 20180718
  5. CROMATONBIC [Suspect]
     Active Substance: VITAMINS
     Route: 048
     Dates: start: 20180718, end: 20180718
  6. DUPHALAC [Suspect]
     Active Substance: LACTULOSE
     Route: 048
     Dates: start: 20180718, end: 20180718
  7. PREGABALINA (3897A) [Interacting]
     Active Substance: PREGABALIN
     Route: 048
     Dates: start: 20180718, end: 20180718
  8. PLAVIX [Suspect]
     Active Substance: CLOPIDOGREL BISULFATE
     Route: 048
     Dates: start: 20180718, end: 20180718
  9. SIMVASTATINA (1023A) [Suspect]
     Active Substance: SIMVASTATIN
     Route: 048
     Dates: start: 20180718, end: 20180718
  10. SINEMET [Suspect]
     Active Substance: CARBIDOPA\LEVODOPA
     Route: 048
     Dates: start: 20180718, end: 20180718
  11. AMLODIPINE [Suspect]
     Active Substance: AMLODIPINE BESYLATE
     Dosage: 5 MILLIGRAM DAILY;
     Route: 048
     Dates: start: 20180718, end: 20180718

REACTIONS (3)
  - Wrong patient received product [Fatal]
  - Hypotension [Fatal]
  - Drug interaction [Unknown]

NARRATIVE: CASE EVENT DATE: 20180718
